FAERS Safety Report 21875176 (Version 6)
Quarter: 2023Q2

REPORT INFORMATION
  Report Type: Report from Study
  Country: CH (occurrence: CH)
  Receive Date: 20230117
  Receipt Date: 20230411
  Transmission Date: 20230721
  Serious: Yes (Death, Other)
  Sender: FDA-Public Use
  Company Number: CH-ABBVIE-4219796

PATIENT
  Age: 67 Year
  Sex: Male

DRUGS (6)
  1. CARBIDOPA\LEVODOPA [Suspect]
     Active Substance: CARBIDOPA\LEVODOPA
     Indication: Parkinson^s disease
     Dosage: MD: 5 ML, CRD: 1.7 ML/H, ED: 2.5 ML
     Route: 050
     Dates: start: 20220804, end: 20220816
  2. CARBIDOPA\LEVODOPA [Suspect]
     Active Substance: CARBIDOPA\LEVODOPA
     Dosage: MD: 5 ML, CRD: 1.7 ML/H, ED: 2.5 ML
     Route: 050
     Dates: start: 20220804, end: 20220816
  3. CARBIDOPA\LEVODOPA [Suspect]
     Active Substance: CARBIDOPA\LEVODOPA
     Dosage: MD: 5 ML, CRD: 1.8 ML/H, ED: 2.5 ML?16H THERAPY
     Route: 050
     Dates: start: 20220816, end: 20230113
  4. CARBIDOPA\LEVODOPA [Suspect]
     Active Substance: CARBIDOPA\LEVODOPA
     Dosage: 16H THERAPY
     Route: 050
     Dates: start: 20150710
  5. CARBIDOPA\LEVODOPA [Suspect]
     Active Substance: CARBIDOPA\LEVODOPA
     Dosage: MD: 5 ML, CRD: 1.8 ML/H, ED: 2.5 ML
     Route: 050
     Dates: start: 20230113, end: 20230119
  6. COVID-19 vaccine [Concomitant]
     Indication: COVID-19 immunisation
     Dosage: ONE IN ONCE
     Route: 030
     Dates: start: 20230112, end: 20230112

REACTIONS (12)
  - General physical health deterioration [Fatal]
  - Muscle contractions involuntary [Not Recovered/Not Resolved]
  - Product use complaint [Not Recovered/Not Resolved]
  - Device breakage [Not Recovered/Not Resolved]
  - Musculoskeletal stiffness [Not Recovered/Not Resolved]
  - Dysphagia [Not Recovered/Not Resolved]
  - Device leakage [Not Recovered/Not Resolved]
  - Device breakage [Not Recovered/Not Resolved]
  - Palliative care [Not Recovered/Not Resolved]
  - General physical health deterioration [Not Recovered/Not Resolved]
  - Off label use [Recovered/Resolved]
  - Hyporesponsive to stimuli [Not Recovered/Not Resolved]

NARRATIVE: CASE EVENT DATE: 20221101
